FAERS Safety Report 23180650 (Version 1)
Quarter: 2023Q4

REPORT INFORMATION
  Report Type: Spontaneous
  Country: DE (occurrence: DE)
  Receive Date: 20231114
  Receipt Date: 20231114
  Transmission Date: 20240110
  Serious: Yes (Hospitalization)
  Sender: FDA-Public Use
  Company Number: DE-SCIEGENP-2023SCLIT00665

PATIENT
  Age: 6 Decade
  Sex: Male

DRUGS (7)
  1. ARIPIPRAZOLE [Suspect]
     Active Substance: ARIPIPRAZOLE
     Indication: Schizophrenia
     Route: 065
  2. CLOZAPINE [Suspect]
     Active Substance: CLOZAPINE
     Indication: Schizophrenia
     Route: 065
  3. CLOZAPINE [Suspect]
     Active Substance: CLOZAPINE
     Route: 065
  4. VALPROATE [Concomitant]
     Active Substance: VALPROIC ACID
     Indication: Epilepsy
     Route: 065
  5. LORAZEPAM [Concomitant]
     Active Substance: LORAZEPAM
     Indication: Epilepsy
     Route: 065
  6. RAMIPRIL [Concomitant]
     Active Substance: RAMIPRIL
     Indication: Hypertension
     Route: 065
  7. TORSEMIDE [Concomitant]
     Active Substance: TORSEMIDE
     Indication: Hypertension
     Route: 065

REACTIONS (3)
  - Traumatic torticollis [Recovered/Resolved]
  - Secondary tic [Recovered/Resolved]
  - Dyskinesia [Recovered/Resolved]
